FAERS Safety Report 6315592-5 (Version None)
Quarter: 2009Q3

REPORT INFORMATION
  Report Type: 
  Country: None (occurrence: None)
  Receive Date: 20090818
  Receipt Date: 20090804
  Transmission Date: 20100115
  Serious: Yes (Hospitalization)
  Sender: FDA-Public Use
  Company Number: 8048747

PATIENT
  Age: 39 Year
  Sex: Female
  Weight: 73 kg

DRUGS (3)
  1. CERTOLIZUMAB PEGOL [Suspect]
     Indication: CROHN'S DISEASE
     Dosage: 200 MG SC
     Route: 058
     Dates: start: 20080520, end: 20090703
  2. SALAZOPYRINE [Concomitant]
  3. MEDROL [Concomitant]

REACTIONS (1)
  - PULMONARY TUBERCULOSIS [None]
